FAERS Safety Report 5245333-4 (Version None)
Quarter: 2007Q1

REPORT INFORMATION
  Report Type: 
  Country: None (occurrence: None)
  Receive Date: 20070223
  Receipt Date: 20070214
  Transmission Date: 20070707
  Serious: Yes (Hospitalization)
  Sender: FDA-Public Use
  Company Number: CZ-AMGEN-UK211600

PATIENT
  Age: 83 Year
  Sex: Female

DRUGS (18)
  1. ARANESP [Suspect]
     Indication: DRUG USE FOR UNKNOWN INDICATION
     Route: 065
  2. CALCIUM CARBONATE [Concomitant]
     Route: 065
  3. CARDURA [Concomitant]
     Route: 065
  4. CONCOR [Concomitant]
     Route: 065
  5. ISOPTIN [Concomitant]
     Route: 065
  6. PREDNISONE [Concomitant]
     Route: 065
  7. CITALOPRAM HYDROBROMIDE [Concomitant]
     Route: 065
  8. FERROUS SULFATE [Concomitant]
     Route: 065
  9. ASCORBIC ACID [Concomitant]
     Route: 065
  10. ALPRAZOLAM [Concomitant]
     Route: 065
  11. FUROSEMIDE [Concomitant]
     Route: 065
  12. PERINDOPRIL ERBUMINE [Concomitant]
     Route: 065
  13. TPN [Concomitant]
     Route: 065
  14. ALFACALCIDOL [Concomitant]
     Route: 065
  15. RILMENIDINE [Concomitant]
     Route: 065
  16. ATORVASTATIN [Concomitant]
     Route: 065
  17. ALLOPURINOL SODIUM [Concomitant]
     Route: 065
  18. SODIUM BICARBONATE [Concomitant]
     Route: 065

REACTIONS (5)
  - ASTHENIA [None]
  - CHILLS [None]
  - HYPERTENSION [None]
  - PRURITUS [None]
  - PYREXIA [None]
